FAERS Safety Report 7063998 (Version 7)
Quarter: 2014Q4

REPORT INFORMATION
  Report Type: Spontaneous
  Country: US (occurrence: US)
  Receive Date: 20090727
  Receipt Date: 20141118
  Transmission Date: 20150529
  Serious: Yes (Hospitalization, Disabling)
  Sender: FDA-Public Use
  Company Number: US-BAYER-200927549NA

PATIENT
  Age: 23 Year
  Sex: Female
  Weight: 52.27 kg

DRUGS (15)
  1. AMPICILLIN [Concomitant]
     Active Substance: AMPICILLIN
     Indication: ACNE
     Dates: start: 200701
  2. DURAGEL [Concomitant]
     Indication: ACNE
     Dates: start: 2000
  3. ALEVE [Concomitant]
     Active Substance: NAPROXEN SODIUM
     Indication: DYSMENORRHOEA
  4. TRIAZ [Concomitant]
     Active Substance: BENZOYL PEROXIDE
     Indication: ACNE
     Dates: start: 200701
  5. FOLIC ACID. [Concomitant]
     Active Substance: FOLIC ACID
  6. RETIN-A [Concomitant]
     Active Substance: TRETINOIN
     Indication: ACNE
     Dates: start: 200701
  7. ADVIL [Concomitant]
     Active Substance: IBUPROFEN
     Indication: DYSMENORRHOEA
  8. COLACE [Concomitant]
     Active Substance: DOCUSATE SODIUM
  9. YASMIN [Suspect]
     Active Substance: DROSPIRENONE\ETHINYL ESTRADIOL
     Indication: ACNE
     Dates: start: 200701, end: 20070731
  10. DOXYCYCLINE. [Concomitant]
     Active Substance: DOXYCYCLINE
     Indication: ACNE
     Dosage: 200 MG (DAILY DOSE), BID,
  11. ADVIL [Concomitant]
     Active Substance: IBUPROFEN
     Indication: HEADACHE
  12. TAZORAC [Concomitant]
     Active Substance: TAZAROTENE
     Indication: ACNE
     Dates: start: 2000
  13. ASCORBIC ACID. [Concomitant]
     Active Substance: ASCORBIC ACID
     Indication: FEELING COLD
  14. ALEVE [Concomitant]
     Active Substance: NAPROXEN SODIUM
     Indication: HEADACHE
  15. ARNICA [Concomitant]

REACTIONS (16)
  - Dyspraxia [Unknown]
  - Abasia [Unknown]
  - Gait spastic [Unknown]
  - Cognitive disorder [Unknown]
  - Emotional disorder [Unknown]
  - Cerebrovascular accident [Unknown]
  - Vomiting [Unknown]
  - Pain [Unknown]
  - Aphasia [Unknown]
  - Asthenia [Unknown]
  - Gait disturbance [Unknown]
  - Injury [Unknown]
  - Clumsiness [Unknown]
  - Headache [Unknown]
  - Hemiplegia [Unknown]
  - Dysarthria [Unknown]

NARRATIVE: CASE EVENT DATE: 20070731
